FAERS Safety Report 16902808 (Version 1)
Quarter: 2019Q4

REPORT INFORMATION
  Report Type: Spontaneous
  Country: CN (occurrence: CN)
  Receive Date: 20191010
  Receipt Date: 20191010
  Transmission Date: 20200122
  Serious: Yes (Other)
  Sender: FDA-Public Use
  Company Number: CN-PFIZER INC-2019434523

PATIENT
  Age: 50 Year
  Sex: Male
  Weight: 82 kg

DRUGS (2)
  1. SODIUM CHLORIDE. [Concomitant]
     Active Substance: SODIUM CHLORIDE
     Indication: HEPATOCELLULAR CARCINOMA
     Dosage: 100 ML, 2X/DAY
     Route: 041
     Dates: start: 20191004, end: 20191004
  2. TAZOCIN [Suspect]
     Active Substance: PIPERACILLIN SODIUM\TAZOBACTAM SODIUM
     Indication: HEPATOCELLULAR CARCINOMA
     Dosage: 4.5 G, 2X/DAY
     Route: 041
     Dates: start: 20191004, end: 20191004

REACTIONS (4)
  - Swelling face [Recovering/Resolving]
  - Pruritus [Recovering/Resolving]
  - Product use in unapproved indication [Unknown]
  - Off label use [Unknown]

NARRATIVE: CASE EVENT DATE: 20191004
